FAERS Safety Report 14119891 (Version 3)
Quarter: 2017Q4

REPORT INFORMATION
  Report Type: Spontaneous
  Country: JP (occurrence: JP)
  Receive Date: 20171024
  Receipt Date: 20171127
  Transmission Date: 20180321
  Serious: Yes (Hospitalization, Other)
  Sender: FDA-Public Use
  Company Number: JP-ASTELLAS-2017JP020056AA

PATIENT
  Age: 84 Year
  Sex: Female
  Weight: 40 kg

DRUGS (2)
  1. BETANIS [Suspect]
     Active Substance: MIRABEGRON
     Indication: HYPERTONIC BLADDER
     Route: 048
     Dates: start: 20170218
  2. BETANIS [Suspect]
     Active Substance: MIRABEGRON
     Indication: HYPERTONIC BLADDER
     Route: 048
     Dates: end: 20170215

REACTIONS (3)
  - Acute kidney injury [Recovered/Resolved]
  - Gastroenteritis [Recovered/Resolved]
  - Long QT syndrome [Recovering/Resolving]

NARRATIVE: CASE EVENT DATE: 20170215
